FAERS Safety Report 5954606-9 (Version None)
Quarter: 2008Q4

REPORT INFORMATION
  Report Type: 
  Country: None (occurrence: None)
  Receive Date: 20081117
  Receipt Date: 20081110
  Transmission Date: 20090506
  Serious: Yes (Other)
  Sender: FDA-Public Use
  Company Number: US-BIOGENIDEC-2008BI030573

PATIENT
  Age: 19 Year
  Sex: Female

DRUGS (1)
  1. AVONEX [Suspect]
     Indication: MULTIPLE SCLEROSIS
     Route: 030
     Dates: start: 20071201, end: 20080215

REACTIONS (5)
  - ABASIA [None]
  - ABNORMAL LABOUR [None]
  - BLINDNESS [None]
  - DYSPEPSIA [None]
  - NAUSEA [None]
